FAERS Safety Report 9467570 (Version 1)
Quarter: 2013Q3

REPORT INFORMATION
  Report Type: Spontaneous
  Country: US (occurrence: None)
  Receive Date: 20130819
  Receipt Date: 20130819
  Transmission Date: 20140515
  Serious: Yes (Other)
  Sender: FDA-Public Use
  Company Number: None

PATIENT
  Age: 47 Year
  Sex: Female
  Weight: 72.58 kg

DRUGS (4)
  1. LEVAQUIN [Suspect]
     Indication: SINUSITIS
     Dosage: STRENGTH: 500MG  1 PILL  ONCE DAILY  MOUTH
     Route: 048
     Dates: start: 20130730, end: 20130811
  2. HAIR NAIL SKIN VITAMIN [Concomitant]
  3. COMPLETE MULTI-CALCIUM [Concomitant]
  4. FISH OIL [Concomitant]

REACTIONS (7)
  - Pain [None]
  - Pain in extremity [None]
  - Pain in extremity [None]
  - Pain in extremity [None]
  - Musculoskeletal pain [None]
  - Arthralgia [None]
  - Arthralgia [None]
